FAERS Safety Report 6742865-4 (Version None)
Quarter: 2010Q2

REPORT INFORMATION
  Report Type: 
  Country: None (occurrence: None)
  Receive Date: 20100526
  Receipt Date: 20100512
  Transmission Date: 20101027
  Serious: Yes (Death, Hospitalization, Other)
  Sender: FDA-Public Use
  Company Number: GB-MYLANLABS-2010S1008386

PATIENT
  Age: 56 Year
  Sex: Female

DRUGS (2)
  1. AZATHIOPRINE SODIUM [Suspect]
     Indication: SYSTEMIC LUPUS ERYTHEMATOSUS
  2. PREDNISOLONE [Suspect]
     Indication: DRUG USE FOR UNKNOWN INDICATION

REACTIONS (11)
  - ANAEMIA [None]
  - ANTIPHOSPHOLIPID SYNDROME [None]
  - BLOOD TRIGLYCERIDES INCREASED [None]
  - CEREBRAL INFARCTION [None]
  - DEVICE RELATED INFECTION [None]
  - ENDOCARDITIS NONINFECTIVE [None]
  - MULTI-ORGAN FAILURE [None]
  - PERITONITIS BACTERIAL [None]
  - SEPTIC SHOCK [None]
  - SKIN ULCER [None]
  - THROMBOCYTOPENIA [None]
